FAERS Safety Report 8248299-8 (Version None)
Quarter: 2012Q1

REPORT INFORMATION
  Report Type: 
  Country: None (occurrence: None)
  Receive Date: 20120330
  Receipt Date: 20120326
  Transmission Date: 20120608
  Serious: Yes (Hospitalization)
  Sender: FDA-Public Use
  Company Number: US-BAYER-2011-049614

PATIENT
  Age: 26 Year
  Sex: Female
  Weight: 98 kg

DRUGS (7)
  1. NSAID'S [Concomitant]
     Dosage: UNK
     Dates: start: 20041001
  2. NSAID'S [Concomitant]
     Dosage: UNK
     Dates: start: 20050701
  3. NSAID'S [Concomitant]
     Dosage: UNK
     Dates: start: 20041101
  4. NSAID'S [Concomitant]
     Dosage: UNK
     Dates: start: 20050101
  5. IBUPROFEN [Concomitant]
  6. ULTRACET [Concomitant]
  7. YAZ [Suspect]
     Indication: CONTRACEPTION
     Dosage: UNK
     Route: 048
     Dates: start: 20061101, end: 20090501

REACTIONS (5)
  - CHOLECYSTITIS CHRONIC [None]
  - PAIN [None]
  - GALLBLADDER DISORDER [None]
  - BILE DUCT STONE [None]
  - INJURY [None]
